FAERS Safety Report 24426977 (Version 1)
Quarter: 2024Q4

REPORT INFORMATION
  Report Type: Spontaneous
  Country: US (occurrence: None)
  Receive Date: 20241010
  Receipt Date: 20241010
  Transmission Date: 20250115
  Serious: Yes (Other)
  Sender: Public
  Company Number: None

PATIENT
  Age: 17 Year
  Sex: Female
  Weight: 57.6 kg

DRUGS (1)
  1. ISOTRETINOIN [Suspect]
     Active Substance: ISOTRETINOIN
     Indication: Acne
     Dosage: OTHER QUANTITY : 30 CAPSULE(S);?FREQUENCY : DAILY;?
     Route: 048
     Dates: start: 20240912, end: 20241006

REACTIONS (13)
  - Alopecia [None]
  - Epistaxis [None]
  - Back pain [None]
  - Arthralgia [None]
  - Lip swelling [None]
  - Lip dry [None]
  - Headache [None]
  - Brain oedema [None]
  - Tremor [None]
  - Crying [None]
  - Pallor [None]
  - Vomiting [None]
  - Dizziness [None]

NARRATIVE: CASE EVENT DATE: 20241006
